FAERS Safety Report 4822792-X (Version None)
Quarter: 2005Q4

REPORT INFORMATION
  Report Type: 
  Country: None (occurrence: None)
  Receive Date: 20051107
  Receipt Date: 20051107
  Transmission Date: 20060501
  Serious: Yes (Other)
  Sender: FDA-Public Use
  Company Number: None

PATIENT
  Age: 76 Year
  Sex: Male
  Weight: 60.8 kg

DRUGS (2)
  1. VORICONAZOLE 10 MG/ML INJECTION, 360 MG PFIZER [Suspect]
     Indication: BRONCHOPULMONARY ASPERGILLOSIS
     Dosage: 360 MG IV Q 12H X2
     Route: 042
     Dates: start: 20050518, end: 20050519
  2. VORICONAZOLE 200 MG TABLET, PFIZER [Suspect]
     Dosage: 200 MG PO Q 12 H
     Route: 048
     Dates: start: 20050519, end: 20050522

REACTIONS (2)
  - ALANINE AMINOTRANSFERASE INCREASED [None]
  - ASPARTATE AMINOTRANSFERASE INCREASED [None]
